FAERS Safety Report 24191471 (Version 11)
Quarter: 2025Q1

REPORT INFORMATION
  Report Type: Report from Study
  Country: CA (occurrence: CA)
  Receive Date: 20240808
  Receipt Date: 20250213
  Transmission Date: 20250409
  Serious: Yes (Other)
  Sender: JOHNSON AND JOHNSON
  Company Number: CA-JNJFOC-20240756215

PATIENT
  Age: 5 Year
  Sex: Female
  Weight: 19 kg

DRUGS (8)
  1. REMICADE [Suspect]
     Active Substance: INFLIXIMAB
     Indication: Colitis ulcerative
     Dosage: FREQUENCY:0,2,6 Q4
     Route: 041
     Dates: start: 20240711
  2. REMICADE [Suspect]
     Active Substance: INFLIXIMAB
     Route: 041
  3. REMICADE [Suspect]
     Active Substance: INFLIXIMAB
     Dosage: BSA DOSING - 0.76X400 = 304 ROUNDED TO 350MG
     Route: 041
  4. REMICADE [Suspect]
     Active Substance: INFLIXIMAB
     Route: 041
     Dates: start: 20240807
  5. REMICADE [Suspect]
     Active Substance: INFLIXIMAB
     Route: 041
  6. REMICADE [Suspect]
     Active Substance: INFLIXIMAB
     Dosage: CLINICIAN HAS CLARIFIED 400MG GIVEN AS HOSPITAL INPATIENT, BASED ON REVISED BSA DOCTOR IS REQUESTING
     Route: 041
  7. REMICADE [Suspect]
     Active Substance: INFLIXIMAB
     Dosage: CLINICIAN HAS CLARIFIED 400MG GIVEN AS HOSPITAL INPATIENT, BASED ON REVISED BSA DOCTOR IS REQUESTING
     Route: 041
     Dates: start: 20240711
  8. PREDNISONE [Concomitant]
     Active Substance: PREDNISONE

REACTIONS (6)
  - Clostridium difficile infection [Not Recovered/Not Resolved]
  - Colitis ulcerative [Not Recovered/Not Resolved]
  - General physical health deterioration [Unknown]
  - Off label use [Unknown]
  - Drug level decreased [Unknown]
  - Therapeutic response decreased [Unknown]
